FAERS Safety Report 7665705-8 (Version None)
Quarter: 2011Q3

REPORT INFORMATION
  Report Type: 
  Country: None (occurrence: None)
  Receive Date: 20110806
  Receipt Date: 20110419
  Transmission Date: 20111222
  Serious: No
  Sender: FDA-Public Use
  Company Number: US-ABBOTT-11P-163-0719635-00

PATIENT
  Sex: Male
  Weight: 83.99 kg

DRUGS (12)
  1. NIASPAN [Suspect]
     Indication: HIGH DENSITY LIPOPROTEIN DECREASED
  2. NIASPAN [Suspect]
     Indication: BLOOD TRIGLYCERIDES INCREASED
     Dates: start: 20020101
  3. LAVASA [Concomitant]
     Indication: PRODUCT USED FOR UNKNOWN INDICATION
  4. ASPIRIN [Concomitant]
     Indication: PRODUCT USED FOR UNKNOWN INDICATION
  5. FOLTX [Concomitant]
     Indication: PRODUCT USED FOR UNKNOWN INDICATION
  6. ASCIPHEX [Concomitant]
     Indication: PRODUCT USED FOR UNKNOWN INDICATION
  7. SAL PALMETO OTC [Concomitant]
     Indication: PRODUCT USED FOR UNKNOWN INDICATION
  8. ALTASE [Concomitant]
     Indication: CARDIAC DISORDER
  9. TRILIPIX [Concomitant]
     Indication: PRODUCT USED FOR UNKNOWN INDICATION
  10. ALLOPURINOL [Concomitant]
     Indication: GOUT
  11. COQ10 [Concomitant]
     Indication: PRODUCT USED FOR UNKNOWN INDICATION
  12. CRESTOR [Concomitant]
     Indication: PRODUCT USED FOR UNKNOWN INDICATION

REACTIONS (4)
  - GINGIVAL DISORDER [None]
  - TOOTH DISORDER [None]
  - DRUG INEFFECTIVE [None]
  - PRURITUS [None]
